FAERS Safety Report 7423712-4 (Version None)
Quarter: 2011Q2

REPORT INFORMATION
  Report Type: 
  Country: None (occurrence: None)
  Receive Date: 20110413
  Receipt Date: 20110413
  Transmission Date: 20111010
  Serious: Yes (Other)
  Sender: FDA-Public Use
  Company Number: None

PATIENT
  Sex: Male

DRUGS (1)
  1. IPRATROPIUM BROMIDE AND ALBUTEROL SULFATE [Suspect]
     Dosage: 1 VIAL NEB BID NEBULIZER

REACTIONS (2)
  - CHEST DISCOMFORT [None]
  - PRODUCT SUBSTITUTION ISSUE [None]
